FAERS Safety Report 6966107-X (Version None)
Quarter: 2010Q3

REPORT INFORMATION
  Report Type: 
  Country: None (occurrence: None)
  Receive Date: 20100903
  Receipt Date: 20100823
  Transmission Date: 20110219
  Serious: Yes (Life-Threatening, Hospitalization)
  Sender: FDA-Public Use
  Company Number: PHFR2010GB00599

PATIENT
  Sex: Male

DRUGS (2)
  1. CLOZARIL [Suspect]
     Indication: SCHIZOPHRENIA
     Dosage: UNK
     Route: 048
     Dates: start: 20070902
  2. CLOZARIL [Suspect]
     Dosage: UNK
     Route: 048

REACTIONS (3)
  - MENTAL IMPAIRMENT [None]
  - SUICIDAL IDEATION [None]
  - SUICIDE ATTEMPT [None]
